FAERS Safety Report 25282374 (Version 6)
Quarter: 2025Q3

REPORT INFORMATION
  Report Type: Spontaneous
  Country: JP (occurrence: JP)
  Receive Date: 20250508
  Receipt Date: 20250707
  Transmission Date: 20251021
  Serious: Yes (Other)
  Sender: AMGEN
  Company Number: JP-PFIZER INC-PV202500052095

PATIENT
  Age: 99 Year
  Sex: Female

DRUGS (5)
  1. ENBREL [Suspect]
     Active Substance: ETANERCEPT
     Indication: Rheumatoid arthritis
     Dosage: 50 MG, EVERY 3 WEEKS
     Route: 058
     Dates: start: 202403
  2. KETOPROFEN [Concomitant]
     Active Substance: KETOPROFEN
  3. Albex [Concomitant]
     Dosage: 2 DF, 2X/DAY
  4. OLMESARTAN MEDOXOMIL [Concomitant]
     Active Substance: OLMESARTAN MEDOXOMIL
     Dosage: 10 MG, 1X/DAY
  5. AMLODIPINE [Concomitant]
     Active Substance: AMLODIPINE BESYLATE
     Dosage: 2 DF, 2X/DAY

REACTIONS (5)
  - Needle issue [Recovering/Resolving]
  - Embedded device [Recovering/Resolving]
  - Injury associated with device [Recovering/Resolving]
  - Injection site pain [Recovering/Resolving]
  - Off label use [Unknown]

NARRATIVE: CASE EVENT DATE: 20240301
